FAERS Safety Report 11336101 (Version 1)
Quarter: 2015Q3

REPORT INFORMATION
  Report Type: Spontaneous
  Country: GB (occurrence: GB)
  Receive Date: 20150804
  Receipt Date: 20150804
  Transmission Date: 20151125
  Serious: Yes (Hospitalization)
  Sender: FDA-Public Use
  Company Number: PHFR2015GB000544

PATIENT
  Sex: Male
  Weight: 78 kg

DRUGS (1)
  1. ZOMETA [Suspect]
     Active Substance: ZOLEDRONIC ACID
     Indication: PRODUCT USED FOR UNKNOWN INDICATION
     Dosage: UNK
     Route: 065

REACTIONS (11)
  - Blood creatinine increased [Unknown]
  - Renal impairment [Unknown]
  - Pneumonia [Unknown]
  - Haemoglobin decreased [Unknown]
  - Lethargy [Unknown]
  - Joint stiffness [Unknown]
  - Arthralgia [Unknown]
  - Fatigue [Not Recovered/Not Resolved]
  - Creatinine renal clearance decreased [Unknown]
  - Dizziness [Not Recovered/Not Resolved]
  - Back pain [Unknown]
